FAERS Safety Report 6831536-1 (Version None)
Quarter: 2010Q3

REPORT INFORMATION
  Report Type: 
  Country: None (occurrence: None)
  Receive Date: 20100712
  Receipt Date: 20100628
  Transmission Date: 20110219
  Serious: Yes (Other)
  Sender: FDA-Public Use
  Company Number: PHHY2010JP40287

PATIENT
  Age: 73 Year
  Sex: Female

DRUGS (9)
  1. VOLTAREN [Suspect]
     Indication: PAIN
     Route: 048
  2. ACYCLOVIR [Concomitant]
     Indication: HERPES ZOSTER
     Dosage: 750 MG
  3. PENTAZOCINE [Concomitant]
     Indication: PAIN
     Dosage: UNK
  4. KETOPROFEN [Concomitant]
     Indication: PAIN
     Dosage: UNK
  5. LIDOCAINE HYDROCHLORIDE [Concomitant]
     Indication: PAIN
     Dosage: UNK
     Route: 008
  6. LOXOPROFEN SODIUM [Concomitant]
     Indication: PAIN
     Dosage: UNK
  7. GABAPENTIN [Concomitant]
     Indication: PAIN
     Dosage: UNK
     Route: 048
  8. AMITRIPTYLINE HYDROCHLORIDE [Concomitant]
     Indication: PAIN
     Dosage: UNK
     Route: 048
  9. VOLTAREN [Concomitant]
     Indication: PAIN
     Dosage: UNK
     Route: 048

REACTIONS (8)
  - BLISTER [None]
  - DIPLEGIA [None]
  - DYSURIA [None]
  - HERPES ZOSTER INFECTION NEUROLOGICAL [None]
  - MUSCULAR WEAKNESS [None]
  - PYELONEPHRITIS [None]
  - PYREXIA [None]
  - URINARY RETENTION [None]
